FAERS Safety Report 5663403-3 (Version None)
Quarter: 2008Q1

REPORT INFORMATION
  Report Type: 
  Country: None (occurrence: None)
  Receive Date: 20080307
  Receipt Date: 20080222
  Transmission Date: 20080703
  Serious: Yes (Hospitalization)
  Sender: FDA-Public Use
  Company Number: 2008P1000034

PATIENT
  Age: 62 Year
  Sex: Male

DRUGS (1)
  1. BUSULFAN (BUSULFAN) [Suspect]
     Indication: STEM CELL TRANSPLANT
     Dosage: 32 ML
     Dates: start: 20070408, end: 20070411

REACTIONS (5)
  - DIARRHOEA [None]
  - MALAISE [None]
  - PNEUMONIA STAPHYLOCOCCAL [None]
  - STOMATITIS [None]
  - VIRAEMIA [None]
